FAERS Safety Report 9558369 (Version 1)
Quarter: 2013Q3

REPORT INFORMATION
  Report Type: Spontaneous
  Country: IT (occurrence: IT)
  Receive Date: 20130926
  Receipt Date: 20130926
  Transmission Date: 20140515
  Serious: Yes (Other)
  Sender: FDA-Public Use
  Company Number: IT-TEVA-432996ISR

PATIENT
  Age: 42 Year
  Sex: Female
  Weight: 60 kg

DRUGS (5)
  1. PACLITAXEL TEVA [Suspect]
     Indication: BREAST CANCER
     Route: 042
     Dates: start: 20130201, end: 20130306
  2. TRIMETON [Concomitant]
     Dosage: 10 MILLIGRAM DAILY;
     Route: 042
     Dates: start: 20130201, end: 20130306
  3. SOLDESAM [Concomitant]
     Indication: PROPHYLAXIS OF NAUSEA AND VOMITING
     Dosage: 8 MILLIGRAM DAILY;
     Route: 040
     Dates: start: 20130201, end: 20130306
  4. RANIDIL [Concomitant]
     Dosage: 50 MILLIGRAM DAILY;
     Route: 042
     Dates: start: 20130201, end: 20130306
  5. ONDANSETRONE HIKMA [Concomitant]
     Indication: PROPHYLAXIS OF NAUSEA AND VOMITING
     Dosage: 8 MILLIGRAM DAILY;
     Route: 042
     Dates: start: 20130201, end: 20130306

REACTIONS (7)
  - Abdominal pain [Unknown]
  - Constipation [Unknown]
  - Nail discolouration [Unknown]
  - Insomnia [Unknown]
  - Stomatitis [Unknown]
  - Ageusia [Unknown]
  - Asthenia [Unknown]
